FAERS Safety Report 5504385-4 (Version None)
Quarter: 2007Q4

REPORT INFORMATION
  Report Type: 
  Country: None (occurrence: None)
  Receive Date: 20071101
  Receipt Date: 20071023
  Transmission Date: 20080405
  Serious: Yes (Hospitalization)
  Sender: FDA-Public Use
  Company Number: NL-PFIZER INC-2007083926

PATIENT
  Sex: Female
  Weight: 61 kg

DRUGS (6)
  1. REVATIO [Suspect]
     Indication: PULMONARY HYPERTENSION
     Route: 048
     Dates: start: 20070920, end: 20070927
  2. IBUPROFEN [Suspect]
     Indication: PERICARDITIS
     Route: 048
     Dates: start: 20070830, end: 20070928
  3. PANTOPRAZOLE SODIUM [Suspect]
     Indication: GASTROOESOPHAGEAL REFLUX DISEASE
     Route: 048
     Dates: start: 20070101, end: 20070928
  4. SINTROM [Concomitant]
     Dates: start: 20070920, end: 20070927
  5. DRUG, UNSPECIFIED [Concomitant]
     Dates: start: 20070827, end: 20070918
  6. ACETAMINOPHEN [Concomitant]

REACTIONS (1)
  - THROMBOCYTOPENIA [None]
